FAERS Safety Report 6154050-8 (Version None)
Quarter: 2009Q2

REPORT INFORMATION
  Report Type: 
  Country: None (occurrence: None)
  Receive Date: 20090414
  Receipt Date: 20090404
  Transmission Date: 20091009
  Serious: Yes (Other)
  Sender: FDA-Public Use
  Company Number: BR-BAYER-200914850LA

PATIENT
  Age: 30 Year
  Sex: Female

DRUGS (2)
  1. BETAFERON [Suspect]
     Indication: RELAPSING-REMITTING MULTIPLE SCLEROSIS
     Dosage: BETAJECT
     Route: 058
     Dates: start: 20070101
  2. CARBAMAZEPINE [Concomitant]
     Indication: DEPRESSION
     Route: 048

REACTIONS (7)
  - ACNE [None]
  - ALOPECIA [None]
  - DYSPHAGIA [None]
  - DYSPNOEA [None]
  - ECZEMA [None]
  - RASH PUSTULAR [None]
  - WEIGHT INCREASED [None]
